FAERS Safety Report 16004644 (Version 1)
Quarter: 2019Q1

REPORT INFORMATION
  Report Type: Spontaneous
  Country: JP (occurrence: JP)
  Receive Date: 20190226
  Receipt Date: 20190226
  Transmission Date: 20190418
  Serious: Yes (Hospitalization)
  Sender: FDA-Public Use
  Company Number: JP-SA-2019SA048853

PATIENT
  Age: 66 Year
  Sex: Male

DRUGS (2)
  1. PLAVIX [Suspect]
     Active Substance: CLOPIDOGREL BISULFATE
     Indication: MYOCARDIAL INFARCTION
     Route: 048
  2. ACETYLSALICYLIC ACID [Concomitant]
     Active Substance: ASPIRIN
     Indication: MYOCARDIAL INFARCTION
     Route: 065

REACTIONS (7)
  - Haemorrhage subcutaneous [Recovered/Resolved]
  - Anaemia [Recovering/Resolving]
  - Factor V inhibition [Recovering/Resolving]
  - Gingival bleeding [Recovered/Resolved]
  - Factor V inhibition [Recovered/Resolved]
  - Coagulation time prolonged [Recovered/Resolved]
  - Conjunctival haemorrhage [Recovered/Resolved]
